FAERS Safety Report 15632128 (Version 1)
Quarter: 2018Q4

REPORT INFORMATION
  Report Type: Spontaneous
  Country: US (occurrence: US)
  Receive Date: 20181119
  Receipt Date: 20181119
  Transmission Date: 20190205
  Serious: Yes (Hospitalization)
  Sender: FDA-Public Use
  Company Number: US-TEVA-2018-US-975852

PATIENT
  Sex: Female

DRUGS (2)
  1. CONSTULOSE [Suspect]
     Active Substance: LACTULOSE
     Indication: LIVER DISORDER
  2. CONSTULOSE [Suspect]
     Active Substance: LACTULOSE
     Indication: CONSTIPATION
     Dosage: 10G/15ML
     Route: 065

REACTIONS (2)
  - Drug ineffective [Unknown]
  - Malaise [Unknown]

NARRATIVE: CASE EVENT DATE: 20181001
